FAERS Safety Report 6872211-7 (Version None)
Quarter: 2010Q3

REPORT INFORMATION
  Report Type: 
  Country: None (occurrence: None)
  Receive Date: 20100721
  Receipt Date: 20090410
  Transmission Date: 20110219
  Serious: No
  Sender: FDA-Public Use
  Company Number: WAES 0911USA02176

PATIENT
  Age: 67 Year
  Sex: Male

DRUGS (6)
  1. PROSCAR [Suspect]
     Dosage: 5 MG/ DAILY/ PO
     Route: 048
     Dates: start: 20090201
  2. UROXATRAL [Suspect]
     Indication: BENIGN PROSTATIC HYPERPLASIA
     Dosage: 10 MG/ DAILY/ PO
     Route: 048
     Dates: start: 20080430
  3. CRESTOR [Concomitant]
  4. TESTIM [Concomitant]
  5. TOPROL-XL [Concomitant]
  6. ASPIRIN [Concomitant]

REACTIONS (2)
  - NAUSEA [None]
  - SKIN ODOUR ABNORMAL [None]
